FAERS Safety Report 7753920 (Version 2)
Quarter: 2012Q4

REPORT INFORMATION
  Report Type: 
  Country: CA (occurrence: CA)
  Receive Date: 20110110
  Receipt Date: 20121106
  Transmission Date: 20130627
  Serious: Yes (Other)
  Sender: FDA-Public Use
  Company Number: PHHY2005CA02209

PATIENT
  Sex: Female

DRUGS (6)
  1. SANDOSTATIN LAR [Suspect]
     Indication: NELSON^S SYNDROME
     Dosage: 20 mg every 4 weeks
     Dates: start: 20040320
  2. PREDNISONE [Concomitant]
     Dosage: 7.5 mg, QD
     Route: 048
  3. FLORINEF [Concomitant]
     Dosage: 0.1 mg, QD
     Route: 048
  4. EFFEXOR [Concomitant]
     Dosage: 75 mg, BID
     Route: 048
  5. GABAPENTIN [Concomitant]
  6. OXYCONTIN [Concomitant]

REACTIONS (10)
  - Blood corticotrophin increased [Unknown]
  - Facial neuralgia [Unknown]
  - Neuralgia [Unknown]
  - Tendonitis [Unknown]
  - Headache [Unknown]
  - Vomiting [Unknown]
  - Diarrhoea [Unknown]
  - Bradycardia [Unknown]
  - Abdominal distension [Unknown]
  - Nausea [Unknown]
